FAERS Safety Report 12544823 (Version 2)
Quarter: 2016Q4

REPORT INFORMATION
  Report Type: Report from Study
  Country: CN (occurrence: CN)
  Receive Date: 20160711
  Receipt Date: 20161116
  Transmission Date: 20170207
  Serious: Yes (Hospitalization)
  Sender: FDA-Public Use
  Company Number: CN-ACTELION-A-CH2016-137417

PATIENT
  Age: 65 Year
  Sex: Female
  Weight: 68 kg

DRUGS (15)
  1. INSULIN [Concomitant]
     Active Substance: INSULIN NOS
     Dosage: 34 IU, QD
     Route: 058
     Dates: start: 201507
  2. FUROSEMIDE. [Concomitant]
     Active Substance: FUROSEMIDE
     Dosage: 30 MG, TID
     Route: 048
     Dates: start: 201509
  3. SODIUM BICARBONATE. [Concomitant]
     Active Substance: SODIUM BICARBONATE
     Dosage: 1 G, TID
     Route: 048
     Dates: start: 20160511
  4. BERAPROST SODIUM [Concomitant]
     Active Substance: BERAPROST SODIUM
     Dosage: 20 ?G, TID
     Route: 048
     Dates: start: 20160511
  5. WARFARIN [Concomitant]
     Active Substance: WARFARIN
     Dosage: 6.75 MG, QD
     Route: 048
     Dates: start: 20160511
  6. SPIRONOLACTONE. [Concomitant]
     Active Substance: SPIRONOLACTONE
     Dosage: 20 MG, TID
     Route: 048
     Dates: start: 20160511
  7. OXYGEN. [Concomitant]
     Active Substance: OXYGEN
     Dosage: UNK UNK, PRN
     Dates: start: 20151020
  8. MACITENTAN [Suspect]
     Active Substance: MACITENTAN
     Indication: PULMONARY HYPERTENSION
     Dosage: 10 MG, QD
     Route: 048
     Dates: start: 20160510, end: 20160616
  9. MACITENTAN [Suspect]
     Active Substance: MACITENTAN
     Indication: PULMONARY HYPERTENSION
     Dosage: 10 MG, QD
     Route: 048
     Dates: start: 20160510, end: 20160616
  10. DIGOXIN. [Concomitant]
     Active Substance: DIGOXIN
     Dosage: 0.125 MG, QOD
     Route: 048
     Dates: start: 2011
  11. COENZYME Q10 [Concomitant]
     Active Substance: UBIDECARENONE
     Dosage: 10 MG, TID
     Route: 048
     Dates: start: 20160505
  12. RISPERIDONE. [Concomitant]
     Active Substance: RISPERIDONE
     Dosage: 0.5 MG, BID
     Route: 048
     Dates: start: 2007
  13. POTASSIUM CHLORIDE. [Concomitant]
     Active Substance: POTASSIUM CHLORIDE
     Dosage: 1 G, TID
     Route: 048
     Dates: start: 201509
  14. CHARCOAL [Concomitant]
     Active Substance: ACTIVATED CHARCOAL
     Dosage: 0.9 G, TID
     Route: 048
     Dates: start: 20160410
  15. TADALAFIL [Concomitant]
     Active Substance: TADALAFIL
     Dosage: 10 MG, QD
     Route: 048
     Dates: start: 20160511

REACTIONS (8)
  - Haematocrit decreased [Recovered/Resolved]
  - Dysuria [Recovered/Resolved]
  - Haemoglobin decreased [Recovered/Resolved]
  - Prothrombin time prolonged [Unknown]
  - Renal cyst [Unknown]
  - Haematuria [Recovered/Resolved]
  - International normalised ratio increased [Unknown]
  - Cystitis [Recovered/Resolved]

NARRATIVE: CASE EVENT DATE: 20160602
